FAERS Safety Report 9788239 (Version 8)
Quarter: 2014Q2

REPORT INFORMATION
  Report Type: Spontaneous
  Country: US (occurrence: US)
  Receive Date: 20131230
  Receipt Date: 20140529
  Transmission Date: 20141212
  Serious: Yes (Hospitalization, Other)
  Sender: FDA-Public Use
  Company Number: US-JNJFOC-20131107819

PATIENT
  Age: 24 Year
  Sex: Female
  Weight: 68.95 kg

DRUGS (15)
  1. REMICADE [Suspect]
     Indication: CROHN^S DISEASE
     Route: 042
     Dates: start: 20130513
  2. REMICADE [Suspect]
     Indication: CROHN^S DISEASE
     Route: 042
     Dates: start: 20130319
  3. REMICADE [Suspect]
     Indication: CROHN^S DISEASE
     Route: 042
     Dates: start: 20120819
  4. REMICADE [Suspect]
     Indication: CROHN^S DISEASE
     Route: 042
     Dates: start: 20120727
  5. REMICADE [Suspect]
     Indication: CROHN^S DISEASE
     Route: 042
  6. REMICADE [Suspect]
     Indication: CROHN^S DISEASE
     Route: 042
     Dates: start: 20130711
  7. REMICADE [Suspect]
     Indication: CROHN^S DISEASE
     Route: 042
     Dates: start: 20130819
  8. REMICADE [Suspect]
     Indication: CROHN^S DISEASE
     Route: 042
     Dates: start: 20130903
  9. REMICADE [Suspect]
     Indication: CROHN^S DISEASE
     Route: 042
     Dates: start: 20130912
  10. REMICADE [Suspect]
     Indication: CROHN^S DISEASE
     Route: 042
     Dates: start: 20120511
  11. FLAGYL [Concomitant]
     Route: 065
     Dates: start: 20130912
  12. ASACOL [Concomitant]
     Route: 065
     Dates: start: 20130814, end: 20130912
  13. DILAUDID [Concomitant]
     Route: 065
  14. SOLU-MEDROL [Concomitant]
     Route: 065
  15. ZOFRAN [Concomitant]
     Route: 065

REACTIONS (11)
  - Cystitis [Unknown]
  - Blood count abnormal [Unknown]
  - Pyelonephritis [Unknown]
  - Arthralgia [Recovered/Resolved]
  - Tremor [Recovered/Resolved]
  - Alopecia [Unknown]
  - Decreased appetite [Unknown]
  - Vomiting [Unknown]
  - Weight decreased [Unknown]
  - Abdominal pain [Unknown]
  - Nausea [Unknown]
